FAERS Safety Report 8270636-9 (Version None)
Quarter: 2012Q2

REPORT INFORMATION
  Report Type: 
  Country: None (occurrence: None)
  Receive Date: 20120410
  Receipt Date: 20120327
  Transmission Date: 20120825
  Serious: Yes (Other)
  Sender: FDA-Public Use
  Company Number: BR-AMGEN-BRASP2012015426

PATIENT
  Age: 59 Year
  Sex: Female
  Weight: 80 kg

DRUGS (13)
  1. GLYBURIDE [Concomitant]
     Indication: DIABETES MELLITUS
  2. SIMVASTATIN [Concomitant]
     Indication: RHEUMATOID ARTHRITIS
     Dosage: 20 MG, ONCE AT NIGHT
  3. PREDNISONE TAB [Concomitant]
     Indication: ARTHRITIS
     Dosage: 5 MG, 1X/DAY
     Route: 048
     Dates: start: 20020701
  4. ARAVA [Concomitant]
     Indication: RHEUMATOID ARTHRITIS
  5. ATENOLOL [Concomitant]
     Indication: HYPERTENSION
     Dosage: 50 MG, 2X/DAY
     Route: 048
  6. ARAVA [Concomitant]
     Indication: ARTHRITIS
     Dosage: 5 MG, 1X/DAY
     Route: 048
     Dates: start: 20101001
  7. CAPTOPRIL [Concomitant]
     Indication: HYPERTENSION
     Dosage: 50 MG, 2X/DAY
  8. CALCIUM CARBONATE [Concomitant]
     Indication: OSTEOPOROSIS PROPHYLAXIS
     Dosage: 500 MG, A DAY
     Route: 048
     Dates: start: 20101021
  9. ATENOLOL [Concomitant]
     Indication: DIABETES MELLITUS
  10. GLYBURIDE [Concomitant]
     Indication: HYPERTENSION
     Dosage: 5 MG, 3X/DAY
     Route: 048
  11. CAPTOPRIL [Concomitant]
     Indication: DIABETES MELLITUS
  12. ENBREL [Suspect]
     Indication: RHEUMATOID ARTHRITIS
     Dosage: 50 MG, WEEKLY
     Route: 058
     Dates: start: 20120218
  13. VITAMIN D [Concomitant]
     Indication: OSTEOPOROSIS PROPHYLAXIS
     Dosage: 800 IU, A DAY
     Route: 048
     Dates: start: 20101021

REACTIONS (6)
  - RHEUMATOID ARTHRITIS [None]
  - JOINT WARMTH [None]
  - PAIN IN EXTREMITY [None]
  - TENOSYNOVITIS [None]
  - LIGAMENT SPRAIN [None]
  - JOINT SWELLING [None]
